FAERS Safety Report 17991671 (Version 1)
Quarter: 2020Q3

REPORT INFORMATION
  Report Type: Spontaneous
  Country: US (occurrence: US)
  Receive Date: 20200707
  Receipt Date: 20200707
  Transmission Date: 20201103
  Serious: No
  Sender: FDA-Public Use
  Company Number: US-TARO-2019TAR00449

PATIENT
  Age: 76 Year
  Sex: Female
  Weight: 71.2 kg

DRUGS (6)
  1. FLUOCINOLONE ACETONIDE TOPICAL SCALP OIL 0.01% [Suspect]
     Active Substance: FLUOCINOLONE ACETONIDE
     Indication: PSORIASIS
     Dosage: UNK EVERY 3 TO 4 DAYS
     Route: 061
     Dates: start: 201808, end: 201902
  2. SIMVASTATIN. [Concomitant]
     Active Substance: SIMVASTATIN
     Dosage: 20 MG, 1X/DAY, AT NIGHT
  3. VITAMINS [Concomitant]
     Active Substance: VITAMINS
  4. FLUOCINOLONE ACETONIDE TOPICAL SCALP OIL 0.01% [Suspect]
     Active Substance: FLUOCINOLONE ACETONIDE
     Dosage: UNK, EVERY 3 TO 4 DAYS
     Route: 061
     Dates: start: 20190404, end: 2019
  5. FLUOCINOLONE ACETONIDE TOPICAL SCALP OIL 0.01% [Suspect]
     Active Substance: FLUOCINOLONE ACETONIDE
     Dosage: UNK, EVERY 8 DAYS
     Route: 061
     Dates: start: 201906
  6. OTEZLA [Concomitant]
     Active Substance: APREMILAST
     Dosage: 30 MG, 2X/DAY

REACTIONS (1)
  - Hair colour changes [Not Recovered/Not Resolved]

NARRATIVE: CASE EVENT DATE: 201812
